FAERS Safety Report 21029509 (Version 13)
Quarter: 2022Q4

REPORT INFORMATION
  Report Type: Report from Study
  Country: KR (occurrence: None)
  Receive Date: 20220630
  Receipt Date: 20221108
  Transmission Date: 20230113
  Serious: Yes (Hospitalization)
  Sender: FDA-Public Use
  Company Number: KR-Eisai Medical Research-EC-2022-117985

PATIENT
  Age: 77 Year
  Sex: Female
  Weight: 73.4 kg

DRUGS (18)
  1. LENVATINIB [Suspect]
     Active Substance: LENVATINIB
     Indication: Endometrial cancer
     Dosage: STARTING DOSE AT 20 MG, FLUCTUATED DOSAGE
     Route: 048
     Dates: start: 20211103, end: 20220601
  2. PEMBROLIZUMAB [Suspect]
     Active Substance: PEMBROLIZUMAB
     Indication: Endometrial cancer
     Dosage: MK-7684A 400 MG (VIBOSTOLIMAB [MK-7684] 200MG (+) PEMBROLIZUMAB [MK-3475] 200 MG)
     Route: 042
     Dates: start: 20211103, end: 20220513
  3. VIBOSTOLIMAB [Suspect]
     Active Substance: VIBOSTOLIMAB
     Dosage: MK-7684A 400 MG (VIBOSTOLIMAB [MK-7684] 200MG (+) PEMBROLIZUMAB [MK-3475] 200 MG)
     Route: 042
     Dates: start: 20220624, end: 20220624
  4. NEURONTIN [Concomitant]
     Active Substance: GABAPENTIN
     Dates: start: 20210414
  5. FERROUS SULFATE [Concomitant]
     Active Substance: FERROUS SULFATE
     Dates: start: 20211130
  6. LOPERAMIDE [Concomitant]
     Active Substance: LOPERAMIDE
     Dates: start: 20211201
  7. MAGNESIUM OXIDE [Concomitant]
     Active Substance: MAGNESIUM OXIDE
     Dates: start: 20211110
  8. ENCOVER [Concomitant]
     Dates: start: 20211117
  9. HYSONE [HYDROCORTISONE] [Concomitant]
     Dates: start: 20220602
  10. FOTAGEL [Concomitant]
     Dates: start: 20211201
  11. LACTICARE HC [HYDROCORTISONE] [Concomitant]
     Dates: start: 20211215
  12. XYZAL [Concomitant]
     Active Substance: LEVOCETIRIZINE DIHYDROCHLORIDE
     Dates: start: 20211215
  13. TOPISOL MILK LOTION [Concomitant]
     Dates: start: 20220103
  14. EBASTINE [Concomitant]
     Active Substance: EBASTINE
     Dates: start: 20220103
  15. PREDNISOLONE [Concomitant]
     Active Substance: PREDNISOLONE
     Dates: start: 20220107
  16. NORVASC [Concomitant]
     Active Substance: AMLODIPINE BESYLATE
     Dates: start: 20220401
  17. LASIX [Concomitant]
     Active Substance: FUROSEMIDE
     Dates: start: 20220401
  18. SPIRODACTON [Concomitant]
     Dates: start: 20220610, end: 20220830

REACTIONS (1)
  - Nephrotic syndrome [Recovered/Resolved]

NARRATIVE: CASE EVENT DATE: 20220617
